FAERS Safety Report 15245451 (Version 2)
Quarter: 2018Q3

REPORT INFORMATION
  Report Type: Spontaneous
  Country: US (occurrence: US)
  Receive Date: 20180806
  Receipt Date: 20180810
  Transmission Date: 20181010
  Serious: Yes (Hospitalization, Other)
  Sender: FDA-Public Use
  Company Number: US-SA-2018SA212236

PATIENT
  Age: 40 Year
  Sex: Male

DRUGS (1)
  1. DUPIXENT [Suspect]
     Active Substance: DUPILUMAB
     Indication: DERMATITIS ATOPIC
     Dosage: UNK
     Route: 058
     Dates: start: 201708

REACTIONS (12)
  - Cataract [Unknown]
  - Skin texture abnormal [Unknown]
  - Scratch [Unknown]
  - Pain [Unknown]
  - Corneal abrasion [Unknown]
  - Erythema [Unknown]
  - Eye discharge [Unknown]
  - Alopecia [Unknown]
  - Scab [Unknown]
  - Malaise [Unknown]
  - Unevaluable event [Unknown]
  - Eczema [Unknown]
